FAERS Safety Report 10257296 (Version 1)
Quarter: 2014Q2

REPORT INFORMATION
  Report Type: Spontaneous
  Country: US (occurrence: None)
  Receive Date: 20140623
  Receipt Date: 20140623
  Transmission Date: 20141212
  Serious: Yes (Hospitalization)
  Sender: FDA-Public Use
  Company Number: None

PATIENT
  Age: 64 Year
  Sex: Male
  Weight: 71.4 kg

DRUGS (1)
  1. HYDROCHLOROTHIAZIDE/TRIAMTERENE [Suspect]
     Indication: HYPERTENSION
     Route: 048
     Dates: start: 20001023, end: 20140321

REACTIONS (2)
  - Hypotension [None]
  - Hyponatraemia [None]
